FAERS Safety Report 6956389-2 (Version None)
Quarter: 2010Q3

REPORT INFORMATION
  Report Type: 
  Country: None (occurrence: None)
  Receive Date: 20100830
  Receipt Date: 20100826
  Transmission Date: 20110219
  Serious: Yes (Death)
  Sender: FDA-Public Use
  Company Number: A0878170A

PATIENT
  Age: 68 Year
  Sex: Female

DRUGS (1)
  1. PROMACTA [Suspect]

REACTIONS (1)
  - DEATH [None]
